FAERS Safety Report 19172843 (Version 2)
Quarter: 2021Q2

REPORT INFORMATION
  Report Type: Other
  Country: IT (occurrence: IT)
  Receive Date: 20210423
  Receipt Date: 20210517
  Transmission Date: 20210717
  Serious: Yes (Other)
  Sender: FDA-Public Use
  Company Number: IT-ASTELLAS-2021US014367

PATIENT
  Age: 29 Year
  Sex: Female

DRUGS (1)
  1. AMPHOTERICIN B, LIPOSOME [Suspect]
     Active Substance: AMPHOTERICIN B
     Indication: SYSTEMIC MYCOSIS
     Dosage: 200 MG, UNKNOWN FREQ. (ONCE)
     Route: 042
     Dates: start: 20210323, end: 20210323

REACTIONS (3)
  - Dyspnoea [Recovering/Resolving]
  - Cough [Recovering/Resolving]
  - Feeling hot [Recovering/Resolving]

NARRATIVE: CASE EVENT DATE: 20210323
